FAERS Safety Report 9861645 (Version 1)
Quarter: 2014Q1

REPORT INFORMATION
  Report Type: Spontaneous
  Country: US (occurrence: US)
  Receive Date: 20140203
  Receipt Date: 20140203
  Transmission Date: 20141002
  Serious: Yes (Other)
  Sender: FDA-Public Use
  Company Number: US-BRISTOL-MYERS SQUIBB COMPANY-20143459

PATIENT
  Age: 70 Year
  Sex: Female
  Weight: 92.51 kg

DRUGS (1)
  1. BYETTA [Suspect]
     Dosage: STARTED 4 WEEKS AGO

REACTIONS (3)
  - Pneumonia [Unknown]
  - Nausea [Unknown]
  - Vomiting [Unknown]
